FAERS Safety Report 25939458 (Version 1)
Quarter: 2025Q4

REPORT INFORMATION
  Report Type: Spontaneous
  Country: TR (occurrence: TR)
  Receive Date: 20251020
  Receipt Date: 20251020
  Transmission Date: 20260118
  Serious: Yes (Hospitalization, Other)
  Sender: Norvium Bioscience
  Company Number: TR-Norvium Bioscience LLC-080563

PATIENT
  Age: 72 Year
  Sex: Female
  Weight: 0 kg

DRUGS (2)
  1. MESALAMINE [Suspect]
     Active Substance: MESALAMINE
     Indication: Colitis ulcerative
  2. PREDNISOLONE [Concomitant]
     Active Substance: PREDNISOLONE
     Indication: Colitis ulcerative

REACTIONS (1)
  - Pulmonary fibrosis [Recovered/Resolved]
